FAERS Safety Report 8832730 (Version 1)
Quarter: 2012Q4

REPORT INFORMATION
  Report Type: Spontaneous
  Country: US (occurrence: None)
  Receive Date: 20121009
  Receipt Date: 20121009
  Transmission Date: 20130627
  Serious: No
  Sender: FDA-Public Use
  Company Number: None

PATIENT
  Age: 58 Year
  Sex: Female

DRUGS (9)
  1. AMPYRA [Suspect]
     Indication: MULTIPLE SCLEROSIS
     Dosage: Ampyra 10 mg q12h orally
     Route: 048
     Dates: start: 201103, end: 201111
  2. FUROSEMIDE [Concomitant]
  3. PREGABALIN [Concomitant]
  4. PILCARPINE [Concomitant]
  5. PRAMIPEXOLE [Concomitant]
  6. PHENOBARBITAL [Concomitant]
  7. GABAPENTIN [Concomitant]
  8. CEVIMELINE [Concomitant]
  9. TIZANIDINE [Concomitant]

REACTIONS (2)
  - Dizziness [None]
  - Drug ineffective [None]
